FAERS Safety Report 19614707 (Version 1)
Quarter: 2021Q3

REPORT INFORMATION
  Report Type: Spontaneous
  Country: FR (occurrence: FR)
  Receive Date: 20210727
  Receipt Date: 20210727
  Transmission Date: 20211014
  Serious: Yes (Disabling)
  Sender: FDA-Public Use
  Company Number: FR-AMERICAN REGENT INC-2021001903

PATIENT
  Age: 34 Year
  Sex: Female
  Weight: 64 kg

DRUGS (1)
  1. FERINJECT [Suspect]
     Active Substance: FERRIC CARBOXYMALTOSE
     Indication: ANAEMIA
     Dosage: 1000 MG, 1 IN 1 TOTAL
     Route: 042
     Dates: start: 20210519, end: 20210519

REACTIONS (3)
  - Pain in extremity [Not Recovered/Not Resolved]
  - Administration site extravasation [Not Recovered/Not Resolved]
  - Skin discolouration [Not Recovered/Not Resolved]

NARRATIVE: CASE EVENT DATE: 20210519
